FAERS Safety Report 5728872-9 (Version None)
Quarter: 2008Q2

REPORT INFORMATION
  Report Type: 
  Country: None (occurrence: None)
  Receive Date: 20080506
  Receipt Date: 20080429
  Transmission Date: 20081010
  Serious: Yes (Other)
  Sender: FDA-Public Use
  Company Number: US-ASTRAZENECA-2008UW08708

PATIENT
  Age: 51 Year
  Sex: Female
  Weight: 95.3 kg

DRUGS (7)
  1. TOPROL-XL [Suspect]
     Indication: HYPERTENSION
     Route: 048
  2. TOPROL-XL [Suspect]
     Route: 048
     Dates: start: 19950101
  3. NEXIUM [Concomitant]
     Route: 048
  4. AROMASIN [Concomitant]
  5. FLUOXETINE [Concomitant]
  6. CLONAZEPAM [Concomitant]
  7. GABAPENTIN [Concomitant]

REACTIONS (1)
  - BREAST CANCER [None]
